FAERS Safety Report 8818065 (Version 1)
Quarter: 2012Q4

REPORT INFORMATION
  Report Type: 
  Country: US (occurrence: US)
  Receive Date: 20121001
  Receipt Date: 20121001
  Transmission Date: 20130627
  Serious: No
  Sender: FDA-Public Use
  Company Number: US-TEVA-361795USA

PATIENT
  Age: 26 Year
  Sex: Female
  Weight: 56.75 kg

DRUGS (1)
  1. PLAN B ONE-STEP [Suspect]
     Indication: MENSTRUATION IRREGULAR
     Dosage: 1.5 Milligram Daily;
     Route: 048
     Dates: start: 20120921, end: 20120921

REACTIONS (2)
  - Emotional disorder [Not Recovered/Not Resolved]
  - Menstruation irregular [Not Recovered/Not Resolved]
